FAERS Safety Report 9964620 (Version 1)
Quarter: 2014Q1

REPORT INFORMATION
  Report Type: Spontaneous
  Country: IT (occurrence: IT)
  Receive Date: 20140305
  Receipt Date: 20140305
  Transmission Date: 20141002
  Serious: Yes (Other)
  Sender: FDA-Public Use
  Company Number: IT-TEVA-464654ISR

PATIENT
  Age: 49 Year
  Sex: Male

DRUGS (3)
  1. GEMCITABINA TEVA [Suspect]
     Indication: PANCREATIC CARCINOMA
     Dosage: 1350 MILLIGRAM DAILY;
     Route: 042
     Dates: start: 20140214, end: 20140214
  2. ABRAXANE [Suspect]
     Indication: PANCREATIC CARCINOMA
     Dosage: 165 MILLIGRAM DAILY; POWDER FOR SUSPENSION FOR INFUSION
     Route: 042
     Dates: start: 20140214, end: 20140214
  3. ONDANSETRON KABI [Concomitant]
     Indication: PROPHYLAXIS OF NAUSEA AND VOMITING
     Route: 042
     Dates: start: 20140214, end: 20140214

REACTIONS (2)
  - Throat tightness [Recovered/Resolved]
  - Malaise [Recovered/Resolved]
